FAERS Safety Report 9031238 (Version 1)
Quarter: 2013Q1

REPORT INFORMATION
  Report Type: Spontaneous
  Country: US (occurrence: US)
  Receive Date: 20130123
  Receipt Date: 20130123
  Transmission Date: 20140127
  Serious: Yes (Other)
  Sender: FDA-Public Use
  Company Number: US-PFIZER INC-2013028190

PATIENT
  Age: 39 Year
  Sex: Female
  Weight: 61.22 kg

DRUGS (6)
  1. PREMARIN [Suspect]
     Indication: HORMONE REPLACEMENT THERAPY
     Dosage: UNK
     Dates: end: 200001
  2. DICYCLOMINE [Concomitant]
     Indication: GASTRIC ULCER
     Dosage: 10 MG, 3X/DAY
  3. DICYCLOMINE [Concomitant]
     Indication: IRRITABLE BOWEL SYNDROME
  4. SYNTHROID [Concomitant]
     Indication: THYROID DISORDER
     Dosage: 88 UG, 1X/DAY
  5. PREVACID [Concomitant]
     Indication: GASTRIC ULCER
     Dosage: 15 MG, 1X/DAY
  6. LOVASTATIN [Concomitant]
     Indication: BLOOD CHOLESTEROL INCREASED
     Dosage: 20 MG, 1X/DAY

REACTIONS (2)
  - Vaginal dysplasia [Unknown]
  - Breast cancer female [Recovered/Resolved]
